FAERS Safety Report 16083278 (Version 1)
Quarter: 2019Q1

REPORT INFORMATION
  Report Type: Spontaneous
  Country: NL (occurrence: NL)
  Receive Date: 20190318
  Receipt Date: 20190318
  Transmission Date: 20190418
  Serious: Yes (Other)
  Sender: FDA-Public Use
  Company Number: NL-AMGEN-NLDSP2019040156

PATIENT
  Age: 54 Year
  Sex: Male
  Weight: 103.3 kg

DRUGS (6)
  1. KYPROLIS [Suspect]
     Active Substance: CARFILZOMIB
     Indication: PLASMA CELL MYELOMA
     Dosage: 20 MILLIGRAM/SQ. METER, DAY 1 AND 2
     Route: 042
     Dates: start: 20180621, end: 20180801
  2. VALACICLOVIR [Concomitant]
     Active Substance: VALACYCLOVIR HYDROCHLORIDE
     Dosage: UNK
     Dates: end: 20180717
  3. TAVEGYL [Concomitant]
     Active Substance: CLEMASTINE FUMARATE
     Dosage: 2 DD 1 MG
     Dates: start: 20180717
  4. CIPROXIN [CIPROFLOXACIN] [Concomitant]
     Indication: PROPHYLAXIS
     Dosage: 500 MILLIGRAM 2DD
     Dates: start: 20180621
  5. LENALIDOMIDE [Concomitant]
     Active Substance: LENALIDOMIDE
     Indication: PLASMA CELL MYELOMA
     Dosage: 25 MILLIGRAM, QD
     Dates: start: 20180621
  6. PREDNISOLONE. [Concomitant]
     Active Substance: PREDNISOLONE
     Dosage: 30 MILLIGRAM, FOR 5 DAYS
     Dates: start: 20180717

REACTIONS (4)
  - Rash generalised [Recovered/Resolved]
  - Liver function test abnormal [Recovered/Resolved]
  - Pruritus generalised [Recovered/Resolved]
  - Skin exfoliation [Unknown]

NARRATIVE: CASE EVENT DATE: 20180704
